FAERS Safety Report 5823828-X (Version None)
Quarter: 2008Q3

REPORT INFORMATION
  Report Type: 
  Country: None (occurrence: None)
  Receive Date: 20080725
  Receipt Date: 20080717
  Transmission Date: 20090109
  Serious: Yes (Death, Hospitalization, Other)
  Sender: FDA-Public Use
  Company Number: DE-PFIZER INC-2008059791

PATIENT
  Sex: Female
  Weight: 75 kg

DRUGS (1)
  1. VIAGRA [Suspect]
     Dosage: DAILY DOSE:25MG-FREQ:ONE DOSE
     Route: 048

REACTIONS (2)
  - CARDIOGENIC SHOCK [None]
  - MYOCARDIAL INFARCTION [None]
